FAERS Safety Report 8594923-X (Version None)
Quarter: 2012Q3

REPORT INFORMATION
  Report Type: 
  Country: None (occurrence: None)
  Receive Date: 20120815
  Receipt Date: 20120808
  Transmission Date: 20120928
  Serious: Yes (Other)
  Sender: FDA-Public Use
  Company Number: GB-B.I. PHARMACEUTICALS,INC./RIDGEFIELD-2012-UK-01025UK

PATIENT
  Age: 84 Year
  Sex: Female

DRUGS (6)
  1. AMLODIPINE [Concomitant]
  2. LEVOTHYROXINE SODIUM [Concomitant]
  3. PRADAXA [Suspect]
     Indication: ATRIAL FIBRILLATION
  4. PRADAXA [Suspect]
     Indication: CEREBROVASCULAR ACCIDENT PROPHYLAXIS
  5. SIMVASTATIN [Concomitant]
  6. ATENOLOL [Concomitant]

REACTIONS (1)
  - CEREBROVASCULAR ACCIDENT [None]
